FAERS Safety Report 5333258-5 (Version None)
Quarter: 2007Q2

REPORT INFORMATION
  Report Type: 
  Country: None (occurrence: None)
  Receive Date: 20070524
  Receipt Date: 20070514
  Transmission Date: 20071010
  Serious: Yes (Hospitalization)
  Sender: FDA-Public Use
  Company Number: SE-AMGEN-US225931

PATIENT
  Sex: Male

DRUGS (3)
  1. ENBREL [Suspect]
     Indication: PSORIATIC ARTHROPATHY
     Dosage: 50 MG PER WEEK
     Route: 058
     Dates: start: 20041001, end: 20070101
  2. CALCICHEW-D3 [Concomitant]
  3. PREDNISOLONE [Concomitant]

REACTIONS (1)
  - PULMONARY FIBROSIS [None]
